FAERS Safety Report 25018096 (Version 1)
Quarter: 2025Q1

REPORT INFORMATION
  Report Type: Spontaneous
  Country: US (occurrence: None)
  Receive Date: 20250227
  Receipt Date: 20250227
  Transmission Date: 20250408
  Serious: Yes (Hospitalization)
  Sender: FDA-CTU
  Company Number: None

PATIENT
  Age: 25 Year
  Sex: Female
  Weight: 54 kg

DRUGS (1)
  1. OLANZAPINE [Suspect]
     Active Substance: OLANZAPINE
     Indication: Cyclic vomiting syndrome
     Dates: start: 20190902, end: 20190911

REACTIONS (2)
  - Muscle spasms [None]
  - Dyspnoea [None]

NARRATIVE: CASE EVENT DATE: 20190911
